FAERS Safety Report 14138889 (Version 1)
Quarter: 2017Q4

REPORT INFORMATION
  Report Type: Spontaneous
  Country: BR (occurrence: BR)
  Receive Date: 20171027
  Receipt Date: 20171027
  Transmission Date: 20180321
  Serious: Yes (Hospitalization, Other)
  Sender: FDA-Public Use
  Company Number: BR-ALEXION-A201709887

PATIENT
  Age: 48 Year
  Sex: Female

DRUGS (3)
  1. SOLIRIS [Suspect]
     Active Substance: ECULIZUMAB
     Dosage: 900 MG, UNK
     Route: 042
     Dates: start: 20140819
  2. XARELTO [Concomitant]
     Active Substance: RIVAROXABAN
     Indication: ANTICOAGULANT THERAPY
     Dosage: UNK
     Route: 048
  3. SOLIRIS [Suspect]
     Active Substance: ECULIZUMAB
     Indication: PAROXYSMAL NOCTURNAL HAEMOGLOBINURIA
     Dosage: 600 MG, UNK
     Route: 042
     Dates: start: 20140721, end: 20140812

REACTIONS (9)
  - Pyrexia [Unknown]
  - Generalised oedema [Unknown]
  - Scab [Recovered/Resolved]
  - Anaemia [Unknown]
  - Catheter site erythema [Recovered/Resolved]
  - Sepsis [Recovered/Resolved with Sequelae]
  - Poor venous access [Unknown]
  - Catheter site infection [Recovered/Resolved with Sequelae]
  - Secretion discharge [Unknown]

NARRATIVE: CASE EVENT DATE: 201708
